FAERS Safety Report 12420328 (Version 2)
Quarter: 2016Q2

REPORT INFORMATION
  Report Type: Spontaneous
  Country: JP (occurrence: JP)
  Receive Date: 20160531
  Receipt Date: 20160601
  Transmission Date: 20160815
  Serious: Yes (Hospitalization, Other)
  Sender: FDA-Public Use
  Company Number: JP-PFIZER INC-2016274675

PATIENT
  Age: 33 Year
  Sex: Female

DRUGS (4)
  1. IBUPROFEN. [Suspect]
     Active Substance: IBUPROFEN
     Dosage: 1500 MG, SINGLE
     Route: 048
  2. SERTRALINE HCL [Suspect]
     Active Substance: SERTRALINE HYDROCHLORIDE
     Dosage: 1050 MG, SINGLE
     Route: 048
  3. ACETAMINOPHEN. [Suspect]
     Active Substance: ACETAMINOPHEN
     Dosage: 4500 MG, SINGLE
     Route: 048
  4. DIHYDROCODEINE PHOSPHATE [Suspect]
     Active Substance: DIHYDROCODEINE PHOSPHATE
     Dosage: 117 MG, SINGLE
     Route: 048

REACTIONS (4)
  - Toxicity to various agents [Unknown]
  - Pancreatitis acute [Recovered/Resolved]
  - Suicide attempt [Unknown]
  - Intentional overdose [Unknown]
